FAERS Safety Report 5998025-8 (Version None)
Quarter: 2008Q4

REPORT INFORMATION
  Report Type: 
  Country: None (occurrence: None)
  Receive Date: 20081211
  Receipt Date: 20081125
  Transmission Date: 20090506
  Serious: Yes (Death, Hospitalization)
  Sender: FDA-Public Use
  Company Number: KV200800544

PATIENT
  Age: 70 Year
  Sex: Male
  Weight: 81.6 kg

DRUGS (4)
  1. ISOSORBIDE MONONITRATE [Suspect]
     Indication: CARDIAC DISORDER
     Dosage: 30 MG, QD, ORAL
     Route: 048
     Dates: start: 20040101, end: 20080701
  2. LASIX [Concomitant]
  3. INSULIN (INSULIN) [Concomitant]
  4. UNSPECIFIED PAIN MEDICATION [Concomitant]

REACTIONS (6)
  - ASTHENIA [None]
  - CARDIAC FAILURE CONGESTIVE [None]
  - CEREBROVASCULAR ACCIDENT [None]
  - FATIGUE [None]
  - LEUKAEMIA [None]
  - PRODUCT QUALITY ISSUE [None]
